FAERS Safety Report 11388529 (Version 1)
Quarter: 2015Q3

REPORT INFORMATION
  Report Type: Spontaneous
  Country: US (occurrence: US)
  Receive Date: 20150817
  Receipt Date: 20150817
  Transmission Date: 20151125
  Serious: Yes (Hospitalization, Other)
  Sender: FDA-Public Use
  Company Number: US-OTSUKA-2015_007308

PATIENT

DRUGS (3)
  1. DACOGEN [Suspect]
     Active Substance: DECITABINE
     Indication: ACUTE MYELOID LEUKAEMIA
     Dosage: 38 MG, DAILY FOR 5 DAYS EVERY 28 DAYS
     Dates: start: 20140524
  2. DACOGEN [Suspect]
     Active Substance: DECITABINE
     Dosage: 40 MG, DAILY FOR 5 DAYS
     Dates: end: 20150717
  3. NORCO [Suspect]
     Active Substance: ACETAMINOPHEN\HYDROCODONE BITARTRATE
     Indication: PRODUCT USED FOR UNKNOWN INDICATION
     Dosage: UNK

REACTIONS (10)
  - Chest pain [Unknown]
  - Sinusitis [Unknown]
  - Acute myeloid leukaemia [Unknown]
  - Pulmonary embolism [Unknown]
  - Aphonia [Unknown]
  - Myelodysplastic syndrome [Unknown]
  - Surgery [Unknown]
  - Dysphonia [Unknown]
  - Haemorrhoids [Unknown]
  - Gastrointestinal haemorrhage [Unknown]

NARRATIVE: CASE EVENT DATE: 201406
